FAERS Safety Report 9605241 (Version 12)
Quarter: 2015Q1

REPORT INFORMATION
  Report Type: Spontaneous
  Country: US (occurrence: US)
  Receive Date: 20131008
  Receipt Date: 20150319
  Transmission Date: 20150721
  Serious: Yes (Death, Hospitalization, Other)
  Sender: FDA-Public Use
  Company Number: US-GLAXOSMITHKLINE-A1044444A

PATIENT
  Age: 52 Year
  Sex: Female

DRUGS (10)
  1. FLOLAN [Suspect]
     Active Substance: EPOPROSTENOL SODIUM
     Dosage: UNK
     Dates: start: 20011109
  2. FLOLAN [Suspect]
     Active Substance: EPOPROSTENOL SODIUM
     Dosage: UNK
     Dates: start: 20011109
  3. LETAIRIS [Concomitant]
     Active Substance: AMBRISENTAN
  4. FLOLAN [Suspect]
     Active Substance: EPOPROSTENOL SODIUM
     Indication: PULMONARY ARTERIAL HYPERTENSION
     Dosage: DOSE: 21 NG/KG/MIN, CONC: 30,000 NG/MLPUMP RATE: 67 ML/DAY, VIAL STRENGTH: 1.5 MG22 NG/KG/MIN, [...]
     Route: 042
     Dates: start: 20011031
  5. FLOLAN [Suspect]
     Active Substance: EPOPROSTENOL SODIUM
     Dosage: UNK
  6. FLOLAN [Suspect]
     Active Substance: EPOPROSTENOL SODIUM
     Dosage: 22 NG/KG/MIN/CONCENTRATION 30,000 NG/ML/PUMP RATE 70 ML/DAY/VIAL STRENGTH 1.5 MG
     Route: 042
     Dates: start: 20011109
  7. TRACLEER [Concomitant]
     Active Substance: BOSENTAN\BOSENTAN MONOHYDRATE
  8. FLOLAN [Suspect]
     Active Substance: EPOPROSTENOL SODIUM
     Dosage: UNK
  9. FLOLAN [Suspect]
     Active Substance: EPOPROSTENOL SODIUM
     Dosage: 22 NG/KG/MIN/CONCENTRATION 30,000 NG/ML/PUMP RATE 70 ML/DAY/VIAL STRENGTH 1.5 MG
  10. FLOLAN [Suspect]
     Active Substance: EPOPROSTENOL SODIUM
     Dosage: 22 NG/KG/MIN/CONCENTRATION 30,000 NG/ML/PUMP RATE 70 ML/DAY/VIAL STRENGTH 1.5 MG
     Route: 042
     Dates: start: 20011109

REACTIONS (8)
  - Death [Fatal]
  - Catheter site infection [Unknown]
  - Staphylococcal infection [Not Recovered/Not Resolved]
  - Infusion site infection [Not Recovered/Not Resolved]
  - Hospitalisation [Unknown]
  - Neoplasm malignant [Unknown]
  - Device related infection [Unknown]
  - Asthenia [Unknown]

NARRATIVE: CASE EVENT DATE: 20141219
